FAERS Safety Report 5274021-3 (Version None)
Quarter: 2007Q1

REPORT INFORMATION
  Report Type: 
  Country: None (occurrence: None)
  Receive Date: 20070323
  Receipt Date: 20070319
  Transmission Date: 20070707
  Serious: Yes (Hospitalization)
  Sender: FDA-Public Use
  Company Number: HAM-06-008

PATIENT
  Age: 50 Year
  Sex: Female

DRUGS (10)
  1. QUILONORM RETARD [Suspect]
     Dosage: 900MG PER DAY
     Route: 048
     Dates: start: 20060816
  2. ERGENYL [Suspect]
     Dosage: 500MG PER DAY
     Route: 048
     Dates: start: 20060721
  3. HALDOL [Suspect]
     Dosage: 20MG PER DAY
     Route: 048
     Dates: start: 20060804, end: 20060825
  4. DIAZEPAM [Suspect]
     Dosage: 30MG PER DAY
     Route: 048
     Dates: start: 20060809
  5. LEPONEX [Suspect]
     Dosage: 25MG PER DAY
     Route: 048
     Dates: start: 20060830
  6. SEROQUEL [Suspect]
     Dosage: 100MG PER DAY
     Route: 048
     Dates: start: 20060911, end: 20060912
  7. TRIAMTERENE AND HYDROCHLOROTHIAZIDE [Concomitant]
     Route: 048
     Dates: start: 20060802
  8. LEVOTHYROXINE SODIUM [Concomitant]
     Dosage: .1MG PER DAY
     Route: 048
  9. KALINOR [Concomitant]
     Dosage: 1TAB PER DAY
     Route: 048
     Dates: start: 20060720, end: 20060830
  10. FERROUS SULFATE TAB [Concomitant]
     Dosage: 1TAB PER DAY
     Route: 048
     Dates: start: 20060727

REACTIONS (10)
  - BALANCE DISORDER [None]
  - DRUG INTERACTION [None]
  - ENURESIS [None]
  - MUSCULOSKELETAL STIFFNESS [None]
  - PARKINSONISM [None]
  - PLEUROTHOTONUS [None]
  - PSYCHOMOTOR RETARDATION [None]
  - SALIVARY HYPERSECRETION [None]
  - SEDATION [None]
  - SPEECH DISORDER [None]
